FAERS Safety Report 16693287 (Version 2)
Quarter: 2019Q3

REPORT INFORMATION
  Report Type: Spontaneous
  Country: US (occurrence: US)
  Receive Date: 20190812
  Receipt Date: 20190912
  Transmission Date: 20191004
  Serious: Yes (Hospitalization, Other)
  Sender: FDA-Public Use
  Company Number: US-BRISTOL-MYERS SQUIBB COMPANY-BMS-2019-078037

PATIENT
  Sex: Female
  Weight: 87.08 kg

DRUGS (3)
  1. ELIQUIS [Suspect]
     Active Substance: APIXABAN
     Indication: CEREBROVASCULAR ACCIDENT PROPHYLAXIS
     Dosage: 5 MILLIGRAM, BID
     Route: 048
     Dates: start: 201708
  2. OXYCODONE [Concomitant]
     Active Substance: OXYCODONE
     Indication: PRODUCT USED FOR UNKNOWN INDICATION
     Route: 065
  3. ZETIA [Suspect]
     Active Substance: EZETIMIBE
     Indication: BLOOD CHOLESTEROL
     Route: 065

REACTIONS (13)
  - Abdominal pain upper [Unknown]
  - Gait inability [Unknown]
  - Weight increased [Unknown]
  - Meniscus injury [Unknown]
  - Blood urea abnormal [Unknown]
  - Blood creatinine abnormal [Unknown]
  - Pruritus [Unknown]
  - Pain [Unknown]
  - Renal pain [Unknown]
  - Cataract [Unknown]
  - Central nervous system lesion [Unknown]
  - Hepatic function abnormal [Unknown]
  - Lipase abnormal [Unknown]
